FAERS Safety Report 8275245-3 (Version None)
Quarter: 2012Q2

REPORT INFORMATION
  Report Type: 
  Country: None (occurrence: None)
  Receive Date: 20120411
  Receipt Date: 20120401
  Transmission Date: 20120825
  Serious: Yes (Death, Life-Threatening, Hospitalization)
  Sender: FDA-Public Use
  Company Number: DE-ROCHE-1043207

PATIENT
  Sex: Male
  Weight: 80 kg

DRUGS (8)
  1. LEVOTHYROXINE SODIUM [Concomitant]
     Indication: THYROID DISORDER
  2. MOVIPREP [Concomitant]
     Indication: CONSTIPATION
  3. ASPIRIN [Concomitant]
     Indication: CEREBRAL ISCHAEMIA
  4. LISINOPRIL [Suspect]
     Indication: HYPERTENSION
     Route: 048
  5. ACTIVASE [Suspect]
     Indication: CEREBRAL INFARCTION
     Route: 042
     Dates: start: 20120207
  6. ACTIVASE [Suspect]
  7. DIAMOX [Concomitant]
     Indication: CATARACT
  8. SIMVASTATIN [Concomitant]
     Indication: PROPHYLAXIS

REACTIONS (6)
  - RESPIRATORY FAILURE [None]
  - DYSPNOEA [None]
  - TRACHEAL OEDEMA [None]
  - ANGIOEDEMA [None]
  - CYANOSIS [None]
  - BRAIN DEATH [None]
